FAERS Safety Report 20663719 (Version 1)
Quarter: 2022Q2

REPORT INFORMATION
  Report Type: Spontaneous
  Country: IE (occurrence: IE)
  Receive Date: 20220401
  Receipt Date: 20220401
  Transmission Date: 20220721
  Serious: Yes (Congenital Anomaly, Other)
  Sender: FDA-Public Use
  Company Number: IE-ABBVIE-22K-229-4337872-00

PATIENT
  Sex: Female

DRUGS (1)
  1. EPILIM [Suspect]
     Active Substance: VALPROATE SODIUM
     Indication: Maternal exposure timing unspecified
     Route: 064

REACTIONS (8)
  - Malnutrition [Unknown]
  - Educational problem [Unknown]
  - Loss of personal independence in daily activities [Unknown]
  - High-pitched crying [Unknown]
  - Low birth weight baby [Unknown]
  - Urinary incontinence [Unknown]
  - Autism spectrum disorder [Unknown]
  - Foetal exposure during pregnancy [Unknown]
